FAERS Safety Report 4723777-4 (Version None)
Quarter: 2005Q3

REPORT INFORMATION
  Report Type: 
  Country: None (occurrence: None)
  Receive Date: 20050725
  Receipt Date: 20050713
  Transmission Date: 20060218
  Serious: Yes (Other)
  Sender: FDA-Public Use
  Company Number: IT-JNJFOC-20050702544

PATIENT
  Sex: Male

DRUGS (1)
  1. SERENASE [Suspect]
     Indication: DRUG USE FOR UNKNOWN INDICATION
     Dosage: SOLUTION STRENGTH 2MG/ML
     Route: 048
     Dates: start: 20050322, end: 20050415

REACTIONS (1)
  - PANCYTOPENIA [None]
